FAERS Safety Report 5137293-1 (Version None)
Quarter: 2006Q4

REPORT INFORMATION
  Report Type: 
  Country: None (occurrence: None)
  Receive Date: 20061030
  Receipt Date: 20061019
  Transmission Date: 20070319
  Serious: Yes (Hospitalization, Other)
  Sender: FDA-Public Use
  Company Number: GB-BRISTOL-MYERS SQUIBB COMPANY-13556063

PATIENT
  Age: 70 Year
  Sex: Female

DRUGS (1)
  1. CYCLOPHOSPHAMIDE [Suspect]
     Route: 042
     Dates: start: 20040701, end: 20040801

REACTIONS (5)
  - BLADDER FIBROSIS [None]
  - HAEMATURIA [None]
  - MICTURITION DISORDER [None]
  - PAIN [None]
  - RENAL DISORDER [None]
